FAERS Safety Report 4889517-3 (Version None)
Quarter: 2006Q1

REPORT INFORMATION
  Report Type: 
  Country: None (occurrence: None)
  Receive Date: 20060120
  Receipt Date: 20060116
  Transmission Date: 20060701
  Serious: Yes (Hospitalization)
  Sender: FDA-Public Use
  Company Number: 2006007895

PATIENT
  Age: 70 Year
  Sex: Male

DRUGS (14)
  1. SPIRONOLACTONE [Suspect]
     Indication: HYPERTENSION
  2. ENALAPRIL MALEATE [Concomitant]
  3. SIMVASTATIN [Concomitant]
  4. ACETAMINOPHEN [Concomitant]
  5. WARFARIN SODIUM [Concomitant]
  6. BEHEPAN (CYANOCOBALAMIN) [Concomitant]
  7. IMPUGAN (FUROSEMIDE) [Concomitant]
  8. MINDIAB (GLIPIZIDE) [Concomitant]
  9. ZAROXOLYN [Concomitant]
  10. MINIFOM (SIMETICONE) [Concomitant]
  11. NORVASC [Concomitant]
  12. IMDUR [Concomitant]
  13. GLYTRIN (GLYCERYL TRINITRATE) [Concomitant]
  14. ZOPICLONE (ZOPICLONE) [Concomitant]

REACTIONS (3)
  - BREAST PAIN [None]
  - CHEST PAIN [None]
  - GYNAECOMASTIA [None]
